FAERS Safety Report 5188291-3 (Version None)
Quarter: 2006Q4

REPORT INFORMATION
  Report Type: 
  Country: None (occurrence: None)
  Receive Date: 20061221
  Receipt Date: 20061220
  Transmission Date: 20070319
  Serious: Yes (Hospitalization)
  Sender: FDA-Public Use
  Company Number: FR-GLAXOSMITHKLINE-B0451340A

PATIENT
  Age: 37 Year
  Sex: Female

DRUGS (5)
  1. AUGMENTIN '125' [Suspect]
     Indication: BLISTER
     Dosage: 1G TWICE PER DAY
     Route: 065
     Dates: start: 20060424
  2. PYOSTACINE [Suspect]
     Indication: BLISTER
     Dosage: 1G TWICE PER DAY
     Route: 065
     Dates: start: 20060424
  3. SOLUPRED [Concomitant]
     Dosage: 20MG PER DAY
     Route: 065
     Dates: start: 20060424
  4. ZELITREX [Concomitant]
     Dosage: 1UNIT TWICE PER DAY
     Route: 048
     Dates: start: 20060424
  5. CETIRIZINE HCL [Concomitant]
     Dosage: 1UNIT PER DAY
     Route: 048

REACTIONS (2)
  - RASH MACULO-PAPULAR [None]
  - TOXIC SKIN ERUPTION [None]
